FAERS Safety Report 7876766-5 (Version None)
Quarter: 2011Q4

REPORT INFORMATION
  Report Type: 
  Country: None (occurrence: None)
  Receive Date: 20111031
  Receipt Date: 20111027
  Transmission Date: 20120403
  Serious: Yes (Life-Threatening, Hospitalization)
  Sender: FDA-Public Use
  Company Number: JP-B.I. PHARMACEUTICALS,INC./RIDGEFIELD-2011-BP-24051NB

PATIENT
  Sex: Male
  Weight: 60 kg

DRUGS (13)
  1. CASODEX [Concomitant]
     Indication: PROSTATE CANCER
     Dosage: 80 MG
     Route: 048
  2. ALDACTONE [Concomitant]
     Indication: CARDIAC FAILURE CHRONIC
     Dosage: 25 MG
     Route: 048
  3. LASIX [Concomitant]
     Indication: CARDIAC FAILURE CHRONIC
     Dosage: 20 MG
     Route: 048
  4. HALCION [Concomitant]
     Indication: INSOMNIA
     Route: 048
  5. NITRODERM [Concomitant]
     Dosage: 25 MG
     Route: 062
  6. KREMEZIN [Concomitant]
     Indication: RENAL FAILURE CHRONIC
     Dosage: 4 G
     Route: 048
  7. ADALAT [Concomitant]
     Dosage: 40 MG
     Route: 048
  8. SG [Concomitant]
     Indication: HEADACHE
     Route: 048
  9. ALLOPURINOL [Concomitant]
     Dosage: 100 MG
     Route: 048
  10. URSO 250 [Concomitant]
     Indication: HEPATITIS C
     Dosage: 300 MG
     Route: 048
  11. PRADAXA [Suspect]
     Indication: ATRIAL FIBRILLATION
     Dosage: 220 MG
     Route: 048
     Dates: start: 20110401
  12. GASTROM [Concomitant]
     Dosage: 3 G
     Route: 048
  13. CANDESARTAN CILEXETIL [Concomitant]
     Dosage: 8 MG
     Route: 048

REACTIONS (2)
  - BRAIN HERNIATION [None]
  - SUBDURAL HAEMATOMA [None]
